FAERS Safety Report 7369094-8 (Version None)
Quarter: 2011Q1

REPORT INFORMATION
  Report Type: 
  Country: None (occurrence: None)
  Receive Date: 20110323
  Receipt Date: 20110318
  Transmission Date: 20110831
  Serious: Yes (Other)
  Sender: FDA-Public Use
  Company Number: US-AMGEN-QUU413303

PATIENT
  Age: 35 Year
  Sex: Male

DRUGS (4)
  1. NPLATE [Suspect]
     Dates: end: 20100401
  2. NPLATE [Suspect]
     Indication: IDIOPATHIC THROMBOCYTOPENIC PURPURA
     Dosage: 200 A?G, UNK
     Dates: start: 20100219, end: 20100504
  3. DECADRON [Concomitant]
  4. CORTICOSTEROID NOS [Concomitant]
     Dosage: UNK UNK, UNK
     Dates: start: 20100128

REACTIONS (15)
  - INSOMNIA [None]
  - RASH ERYTHEMATOUS [None]
  - LIPOHYPERTROPHY [None]
  - FEELING JITTERY [None]
  - MUSCULAR WEAKNESS [None]
  - FEELING ABNORMAL [None]
  - ARTHROPATHY [None]
  - PAIN [None]
  - PETECHIAE [None]
  - DRUG INEFFECTIVE [None]
  - MYALGIA [None]
  - PNEUMOCYSTIS JIROVECI PNEUMONIA [None]
  - MYOPATHY [None]
  - ARTHRALGIA [None]
  - SWELLING FACE [None]
